FAERS Safety Report 6155933-5 (Version None)
Quarter: 2009Q2

REPORT INFORMATION
  Report Type: 
  Country: None (occurrence: None)
  Receive Date: 20090415
  Receipt Date: 20090401
  Transmission Date: 20091009
  Serious: Yes (Other)
  Sender: FDA-Public Use
  Company Number: DE-ROCHE-622832

PATIENT
  Sex: Female
  Weight: 96 kg

DRUGS (2)
  1. PEGASYS [Suspect]
     Route: 058
     Dates: start: 20081121
  2. COPEGUS [Concomitant]
     Route: 048
     Dates: start: 20081121

REACTIONS (1)
  - SKIN NECROSIS [None]
